FAERS Safety Report 5001670-X (Version None)
Quarter: 2006Q2

REPORT INFORMATION
  Report Type: 
  Country: None (occurrence: None)
  Receive Date: 20060511
  Receipt Date: 20060511
  Transmission Date: 20061013
  Serious: Yes (Other)
  Sender: FDA-Public Use
  Company Number: None

PATIENT
  Age: 28 Year
  Sex: Female
  Weight: 61.6892 kg

DRUGS (1)
  1. LEVAQUIN [Suspect]
     Indication: SINUSITIS
     Dosage: 750MG   ONCE DAILY  PO
     Route: 048
     Dates: start: 20060508, end: 20060508

REACTIONS (11)
  - ABNORMAL DREAMS [None]
  - ANXIETY [None]
  - FEAR [None]
  - HALLUCINATION [None]
  - HYPERVENTILATION [None]
  - INSOMNIA [None]
  - MUSCULAR WEAKNESS [None]
  - PALPITATIONS [None]
  - PARAESTHESIA [None]
  - RESTLESSNESS [None]
  - TREMOR [None]
